FAERS Safety Report 8388627-6 (Version None)
Quarter: 2012Q2

REPORT INFORMATION
  Report Type: 
  Country: None (occurrence: None)
  Receive Date: 20120525
  Receipt Date: 20120518
  Transmission Date: 20120825
  Serious: Yes (Life-Threatening, Hospitalization, Other)
  Sender: FDA-Public Use
  Company Number: GB-MERCK-1205USA03438

PATIENT
  Age: 63 Year
  Sex: Female

DRUGS (8)
  1. METOCLOPRAMIDE [Concomitant]
     Dosage: 4 / 1 DAY
     Route: 065
  2. ACYCLOVIR [Concomitant]
     Indication: PROPHYLAXIS
     Dosage: 4 / 1 DAY
     Route: 065
     Dates: start: 20120418
  3. REVLIMID [Suspect]
     Indication: MULTIPLE MYELOMA
     Route: 048
     Dates: start: 20111101
  4. ALLOPURINOL [Concomitant]
     Indication: TUMOUR LYSIS SYNDROME
     Route: 048
     Dates: start: 20111101
  5. FENTANYL [Concomitant]
     Dosage: 1 / 72 HOURS
     Route: 065
     Dates: start: 20110401
  6. FLUCONAZOLE [Concomitant]
     Indication: PROPHYLAXIS
     Dosage: 1 / 1 DAY
     Route: 065
     Dates: start: 20120418
  7. LANSOPRAZOLE [Concomitant]
     Route: 048
     Dates: start: 20111101
  8. DECADRON [Suspect]
     Indication: MULTIPLE MYELOMA
     Route: 048
     Dates: start: 20111101

REACTIONS (2)
  - PNEUMONIA [None]
  - NEUTROPENIC SEPSIS [None]
